FAERS Safety Report 21500050 (Version 1)
Quarter: 2022Q4

REPORT INFORMATION
  Report Type: Report from Study
  Country: CA (occurrence: CA)
  Receive Date: 20221024
  Receipt Date: 20221024
  Transmission Date: 20230112
  Serious: Yes (Other)
  Sender: FDA-Public Use
  Company Number: CA-PFIZER INC-202201245971

PATIENT
  Age: 39 Year
  Sex: Male

DRUGS (6)
  1. METHOTREXATE SODIUM [Suspect]
     Active Substance: METHOTREXATE SODIUM
     Dosage: UNK
     Route: 058
  2. DICLOFENAC SODIUM [Concomitant]
     Active Substance: DICLOFENAC SODIUM
     Route: 061
  3. MELOXICAM [Concomitant]
     Active Substance: MELOXICAM
     Route: 048
  4. NAPROXEN [Concomitant]
     Active Substance: NAPROXEN
     Route: 048
  5. PREDNISONE [Concomitant]
     Active Substance: PREDNISONE
     Route: 048
  6. SIMPONI [Concomitant]
     Active Substance: GOLIMUMAB
     Dosage: 300 MG, MONTHLY
     Route: 065

REACTIONS (11)
  - Ankylosing spondylitis [Unknown]
  - Arthralgia [Unknown]
  - Back pain [Unknown]
  - Discomfort [Unknown]
  - Drug ineffective [Unknown]
  - Fatigue [Unknown]
  - Inflammation [Unknown]
  - Musculoskeletal stiffness [Unknown]
  - Neck pain [Unknown]
  - Psoriasis [Unknown]
  - Spinal pain [Unknown]
